FAERS Safety Report 8188070-9 (Version None)
Quarter: 2012Q1

REPORT INFORMATION
  Report Type: 
  Country: None (occurrence: None)
  Receive Date: 20120306
  Receipt Date: 20120302
  Transmission Date: 20120608
  Serious: Yes (Other)
  Sender: FDA-Public Use
  Company Number: CN-PFIZER INC-2012055986

PATIENT
  Age: 51 Year
  Sex: Female

DRUGS (1)
  1. LIPITOR [Suspect]
     Indication: LIPIDS INCREASED
     Dosage: 1 TABLET, ONCE DAILY
     Route: 048
     Dates: start: 20120101

REACTIONS (3)
  - SURGERY [None]
  - INCISION SITE PAIN [None]
  - PROCEDURAL SITE REACTION [None]
